FAERS Safety Report 6673692-4 (Version None)
Quarter: 2010Q1

REPORT INFORMATION
  Report Type: 
  Country: None (occurrence: None)
  Receive Date: 20100329
  Receipt Date: 20090624
  Transmission Date: 20100710
  Serious: Yes (Other)
  Sender: FDA-Public Use
  Company Number: 2009234849

PATIENT
  Sex: Male

DRUGS (6)
  1. GEODON [Suspect]
     Dosage: 40 MG, 2X/DAY
     Dates: start: 20090528
  2. ZYPREXA [Concomitant]
  3. SEROQUEL [Concomitant]
  4. ZOLOFT [Concomitant]
  5. LITHIUM CARBONATE [Concomitant]
  6. TRILEPTAL [Concomitant]

REACTIONS (1)
  - CONVULSION [None]
